FAERS Safety Report 8584417-X (Version None)
Quarter: 2012Q3

REPORT INFORMATION
  Report Type: 
  Country: None (occurrence: None)
  Receive Date: 20120810
  Receipt Date: 20120731
  Transmission Date: 20120928
  Serious: Yes (Hospitalization)
  Sender: FDA-Public Use
  Company Number: CZ-009507513-1207CZE012357

PATIENT

DRUGS (1)
  1. NUVARING [Suspect]
     Indication: CONTRACEPTION
     Dosage: UNK
     Route: 067
     Dates: start: 20110101

REACTIONS (3)
  - UNINTENDED PREGNANCY [None]
  - ABORTION INDUCED [None]
  - PREGNANCY WITH CONTRACEPTIVE DEVICE [None]
